FAERS Safety Report 20069331 (Version 1)
Quarter: 2021Q4

REPORT INFORMATION
  Report Type: Spontaneous
  Country: FR (occurrence: FR)
  Receive Date: 20211115
  Receipt Date: 20211115
  Transmission Date: 20220303
  Serious: Yes (Hospitalization)
  Sender: FDA-Public Use
  Company Number: FR-RP-021071

PATIENT
  Age: 4 Year
  Sex: Female

DRUGS (5)
  1. LAMOTRIGINE [Suspect]
     Active Substance: LAMOTRIGINE
     Indication: Myoclonic epilepsy
     Dosage: UNK
  2. LEVETIRACETAM [Suspect]
     Active Substance: LEVETIRACETAM
     Indication: Myoclonic epilepsy
     Dosage: UNK
  3. ETHOSUXIMIDE [Suspect]
     Active Substance: ETHOSUXIMIDE
     Indication: Myoclonic epilepsy
     Dosage: UNK
  4. CLOBAZAM [Suspect]
     Active Substance: CLOBAZAM
     Indication: Myoclonic epilepsy
     Dosage: UNK
  5. VALPROIC ACID [Suspect]
     Active Substance: VALPROIC ACID
     Indication: Myoclonic epilepsy
     Dosage: UNK

REACTIONS (6)
  - Myoclonic epilepsy [Unknown]
  - Petit mal epilepsy [Unknown]
  - Psychomotor skills impaired [Unknown]
  - Drop attacks [Unknown]
  - Status epilepticus [Unknown]
  - Drug ineffective [Unknown]
